FAERS Safety Report 6154003-X (Version None)
Quarter: 2009Q2

REPORT INFORMATION
  Report Type: 
  Country: None (occurrence: None)
  Receive Date: 20090414
  Receipt Date: 20090408
  Transmission Date: 20091009
  Serious: Yes (Hospitalization)
  Sender: FDA-Public Use
  Company Number: PHHY2009JP11235

PATIENT
  Sex: Female
  Weight: 54 kg

DRUGS (2)
  1. ZOMETA [Suspect]
     Indication: METASTASES TO BONE
     Dosage: UNK
     Route: 042
     Dates: start: 20060601, end: 20071201
  2. ZOMETA [Suspect]
     Indication: BREAST CANCER

REACTIONS (2)
  - HYPOAESTHESIA ORAL [None]
  - OSTEOMYELITIS [None]
